FAERS Safety Report 6166353-1 (Version None)
Quarter: 2009Q2

REPORT INFORMATION
  Report Type: 
  Country: None (occurrence: None)
  Receive Date: 20090422
  Receipt Date: 20090422
  Transmission Date: 20091009
  Serious: Yes (Hospitalization)
  Sender: FDA-Public Use
  Company Number: None

PATIENT
  Sex: Female
  Weight: 46.2669 kg

DRUGS (2)
  1. SORAFENIB 600MG BID PO [Suspect]
     Indication: COLON CANCER METASTATIC
     Dosage: 400MG BID P.O. 400MG BID
     Route: 048
     Dates: start: 20090227, end: 20090326
  2. SORAFENIB 600MG BID PO [Suspect]
     Dosage: 600 MG BID P.O. 600MG BID
     Route: 048
     Dates: start: 20090327, end: 20090403

REACTIONS (4)
  - ATAXIA [None]
  - MALIGNANT NEOPLASM PROGRESSION [None]
  - METASTASES TO CENTRAL NERVOUS SYSTEM [None]
  - MUSCULAR WEAKNESS [None]
